FAERS Safety Report 8394203-1 (Version None)
Quarter: 2012Q1

REPORT INFORMATION
  Report Type: 
  Country: None (occurrence: None)
  Receive Date: 20120323
  Receipt Date: 20110804
  Transmission Date: 20120608
  Serious: Yes (Hospitalization, Disabling)
  Sender: FDA-Public Use
  Company Number: 163-21880-11050823

PATIENT
  Age: 73 Year
  Sex: Female

DRUGS (7)
  1. VALACYCLOVIR [Concomitant]
  2. REVLIMID [Suspect]
     Indication: MULTIPLE MYELOMA
     Dosage: 15 MG, DAILY X 21 DAYS THE 7 DAYS OFF, PO
     Route: 048
     Dates: start: 20101221, end: 20110505
  3. ASPIRIN [Concomitant]
  4. DEXAMETHASONE (DEXAMETHASON) [Concomitant]
  5. VELCADE [Concomitant]
  6. CENTRUM (CENTRUM) [Concomitant]
  7. ZOMETA (ZONEDRONIC ACID) [Concomitant]

REACTIONS (1)
  - MULTIPLE MYELOMA [None]
